FAERS Safety Report 24386239 (Version 6)
Quarter: 2025Q1

REPORT INFORMATION
  Report Type: Spontaneous
  Country: FR (occurrence: FR)
  Receive Date: 20241001
  Receipt Date: 20250203
  Transmission Date: 20250409
  Serious: Yes (Hospitalization, Other)
  Sender: MERCK
  Company Number: None

PATIENT
  Age: 83 Year
  Sex: Male

DRUGS (9)
  1. POSACONAZOLE [Suspect]
     Active Substance: POSACONAZOLE
     Indication: Fungal infection
     Dosage: 300 MG MORNING AND EVENING FOR 24 HOURS
     Route: 048
     Dates: start: 20240530
  2. VENETOCLAX [Suspect]
     Active Substance: VENETOCLAX
     Indication: Acute myeloid leukaemia
     Dosage: FORM STRENGTH: 400 MILLIGRAM
     Route: 042
     Dates: start: 20240521, end: 20240521
  3. VENETOCLAX [Suspect]
     Active Substance: VENETOCLAX
     Indication: Haematological malignancy
     Dosage: 100 MILLIGRAM FIRST ADMIN DATE WSA 2024
     Route: 042
     Dates: start: 20240524, end: 20240524
  4. VENETOCLAX [Suspect]
     Active Substance: VENETOCLAX
     Dosage: DAY 3: 400 MG
     Route: 042
     Dates: start: 20240523, end: 20240523
  5. VENETOCLAX [Suspect]
     Active Substance: VENETOCLAX
     Dosage: DAY 1: 100 MG, 100 MG FIRST ADMIN DATE WAS 2024
     Route: 042
     Dates: end: 202406
  6. VENETOCLAX [Suspect]
     Active Substance: VENETOCLAX
     Dosage: DAY 2: 200 MG, 200 MG
     Route: 042
     Dates: start: 20240522, end: 20240522
  7. VENETOCLAX [Suspect]
     Active Substance: VENETOCLAX
     Dosage: 100 MILLIGRAM
     Route: 042
     Dates: start: 20240521, end: 20240521
  8. AZACITIDINE [Suspect]
     Active Substance: AZACITIDINE
     Indication: Acute myeloid leukaemia
     Route: 058
     Dates: start: 20240521, end: 202406
  9. PIPERACILLIN SODIUM\TAZOBACTAM SODIUM [Suspect]
     Active Substance: PIPERACILLIN SODIUM\TAZOBACTAM SODIUM
     Indication: Pyrexia
     Route: 042
     Dates: start: 20240606

REACTIONS (14)
  - Vascular purpura [Unknown]
  - Eczema [Recovered/Resolved]
  - Toxic skin eruption [Unknown]
  - Skin exfoliation [Unknown]
  - Eczema [Unknown]
  - Blood immunoglobulin A increased [Unknown]
  - Vascular purpura [Recovering/Resolving]
  - Congenital aplasia [Unknown]
  - Erythema [Unknown]
  - Rash maculo-papular [Unknown]
  - Dermatitis exfoliative generalised [Unknown]
  - Pyrexia [Unknown]
  - Anaemia [Unknown]
  - Face oedema [Unknown]

NARRATIVE: CASE EVENT DATE: 20240101
